FAERS Safety Report 8418389 (Version 3)
Quarter: 2013Q3

REPORT INFORMATION
  Report Type: Spontaneous
  Country: US (occurrence: None)
  Receive Date: 20120208
  Receipt Date: 20130920
  Transmission Date: 20140515
  Serious: Yes (Hospitalization, Other)
  Sender: FDA-Public Use
  Company Number: ADR-2012-00245

PATIENT
  Sex: Male

DRUGS (1)
  1. LIORESAL [Suspect]
     Indication: MUSCLE SPASTICITY
     Dosage: 109.1 MCG/DAY

REACTIONS (7)
  - Overdose [None]
  - Pyelonephritis [None]
  - Muscle atrophy [None]
  - Facial pain [None]
  - Ear pain [None]
  - Local swelling [None]
  - Device issue [None]
